FAERS Safety Report 12618240 (Version 7)
Quarter: 2016Q4

REPORT INFORMATION
  Report Type: Report from Study
  Country: US (occurrence: US)
  Receive Date: 20160803
  Receipt Date: 20161205
  Transmission Date: 20170207
  Serious: Yes (Hospitalization, Other)
  Sender: FDA-Public Use
  Company Number: US-GILEAD-2016-0202857

PATIENT
  Age: 51 Year
  Sex: Female
  Weight: 67.1 kg

DRUGS (5)
  1. AMBRISENTAN [Suspect]
     Active Substance: AMBRISENTAN
     Indication: PULMONARY ARTERIAL HYPERTENSION
     Dosage: 10 MG, QD
     Route: 065
     Dates: start: 20141121
  2. ORENITRAM [Suspect]
     Active Substance: TREPROSTINIL
     Indication: PRODUCT USED FOR UNKNOWN INDICATION
     Dosage: 5.25 MG, TID
     Route: 065
  3. REVATIO [Concomitant]
     Active Substance: SILDENAFIL CITRATE
  4. REMODULIN [Suspect]
     Active Substance: TREPROSTINIL
     Indication: PULMONARY ARTERIAL HYPERTENSION
     Dosage: 33NG/KG/MIN
     Route: 058
     Dates: start: 20090624
  5. COUMADIN [Concomitant]
     Active Substance: WARFARIN SODIUM

REACTIONS (18)
  - Administration site swelling [Unknown]
  - Abdominal pain [Unknown]
  - Intestinal obstruction [Unknown]
  - Muscle tightness [Unknown]
  - Dizziness [Unknown]
  - Sluggishness [Not Recovered/Not Resolved]
  - Malaise [Unknown]
  - Respiratory tract infection [Unknown]
  - Headache [Not Recovered/Not Resolved]
  - Diarrhoea [Unknown]
  - Musculoskeletal pain [Not Recovered/Not Resolved]
  - Pain [Unknown]
  - Swelling [Unknown]
  - Abdominal distension [Unknown]
  - Pain in jaw [Not Recovered/Not Resolved]
  - Diarrhoea [Not Recovered/Not Resolved]
  - Administration site pain [Unknown]
  - Muscle spasms [Unknown]
